FAERS Safety Report 9193904 (Version 1)
Quarter: 2013Q1

REPORT INFORMATION
  Report Type: Spontaneous
  Country: DE (occurrence: DE)
  Receive Date: 20130327
  Receipt Date: 20130327
  Transmission Date: 20140127
  Serious: Yes (Hospitalization, Other)
  Sender: FDA-Public Use
  Company Number: DE-ABBOTT-13P-062-1068292-00

PATIENT
  Sex: Female

DRUGS (2)
  1. HUMIRA [Suspect]
     Indication: CROHN^S DISEASE
     Route: 058
     Dates: start: 201103, end: 201203
  2. HUMIRA [Suspect]
     Route: 058
     Dates: start: 201203, end: 201303

REACTIONS (2)
  - Urticaria [Recovering/Resolving]
  - Dyspnoea [Recovering/Resolving]
